FAERS Safety Report 5709681-3 (Version None)
Quarter: 2008Q2

REPORT INFORMATION
  Report Type: 
  Country: None (occurrence: None)
  Receive Date: 20080418
  Receipt Date: 20080409
  Transmission Date: 20081010
  Serious: Yes (Other)
  Sender: FDA-Public Use
  Company Number: US-NOVOPROD-273964

PATIENT
  Age: 56 Year
  Sex: Male

DRUGS (2)
  1. LEVEMIR [Suspect]
     Indication: INSULIN-REQUIRING TYPE 2 DIABETES MELLITUS
     Dosage: 8-10 IU, QD
     Route: 058
     Dates: start: 20070701, end: 20080101
  2. LEVEMIR [Suspect]
     Dosage: 20 IU, QD
     Route: 058
     Dates: start: 20080101

REACTIONS (2)
  - LIP SWELLING [None]
  - SWOLLEN TONGUE [None]
